FAERS Safety Report 10419920 (Version 2)
Quarter: 2014Q4

REPORT INFORMATION
  Report Type: Report from Study
  Country: US (occurrence: US)
  Receive Date: 20140829
  Receipt Date: 20141030
  Transmission Date: 20150528
  Serious: Yes (Other)
  Sender: FDA-Public Use
  Company Number: US-ROCHE-1454329

PATIENT
  Age: 11 Year
  Sex: Male
  Weight: 34.8 kg

DRUGS (15)
  1. NUTROPIN AQ [Suspect]
     Active Substance: SOMATROPIN
     Dosage: 0.24 MG/KG/WEEK
     Route: 058
     Dates: start: 201108
  2. NUTROPIN AQ [Suspect]
     Active Substance: SOMATROPIN
     Dosage: 5 MG/ML, 0.32 ML
     Route: 058
  3. HYDROCORTISONE. [Concomitant]
     Active Substance: HYDROCORTISONE
     Route: 048
  4. NUTROPIN AQ [Suspect]
     Active Substance: SOMATROPIN
     Indication: FAILURE TO THRIVE
     Dosage: 0.3 MG/KG/WEEK
     Route: 058
     Dates: start: 200910
  5. HIZENTRA [Concomitant]
     Active Substance: HUMAN IMMUNOGLOBULIN G
     Route: 058
  6. MEGACE [Concomitant]
     Active Substance: MEGESTROL ACETATE
     Route: 048
  7. SOLU-CORTEF [Concomitant]
     Active Substance: HYDROCORTISONE SODIUM SUCCINATE
     Dosage: WHEN NEEDED
     Route: 030
  8. TESTOSTERONE ENANTHATE. [Concomitant]
     Active Substance: TESTOSTERONE ENANTHATE
     Indication: DELAYED PUBERTY
     Dosage: 200 MG/ML; 0.25 ML
     Route: 030
  9. SULFAMETHOXAZOLE/TRIMETHOPRIM [Concomitant]
     Active Substance: SULFAMETHOXAZOLE\TRIMETHOPRIM
     Dosage: M, T, W
     Route: 048
  10. AMOXICILLIN. [Concomitant]
     Active Substance: AMOXICILLIN
     Dosage: 4 CAPS ONE HOUR PRIOR TO DENTAL PROCEDURE
     Route: 048
  11. FLUOCINOLONE [Concomitant]
     Active Substance: FLUOCINOLONE
     Indication: SEBORRHOEIC DERMATITIS
     Route: 065
  12. LISINOPRIL. [Concomitant]
     Active Substance: LISINOPRIL
     Indication: HYPERTENSION
     Route: 048
  13. CHOLECALCIFEROL [Concomitant]
     Active Substance: CHOLECALCIFEROL
     Indication: VITAMIN D DEFICIENCY
     Route: 048
  14. HYDROCORTISONE. [Concomitant]
     Active Substance: HYDROCORTISONE
     Route: 065
  15. GENTEAL LUBRICANT EYE GEL [Concomitant]
     Route: 065

REACTIONS (19)
  - Blood thyroid stimulating hormone increased [Unknown]
  - Vomiting [Unknown]
  - Scleroderma [Unknown]
  - Diarrhoea [Not Recovered/Not Resolved]
  - Blood luteinising hormone decreased [Unknown]
  - Platelet count increased [Unknown]
  - Weight gain poor [Recovered/Resolved]
  - Cushing^s syndrome [Unknown]
  - Extremity contracture [Unknown]
  - Hypertension [Unknown]
  - Graft versus host disease [Unknown]
  - Blood follicle stimulating hormone decreased [Unknown]
  - Blood immunoglobulin A increased [Unknown]
  - Joint contracture [Unknown]
  - Hypercalcaemia [Unknown]
  - Urine protein/creatinine ratio increased [Unknown]
  - Diabetes mellitus [Unknown]
  - Insulin-like growth factor increased [Unknown]
  - Dry eye [Unknown]

NARRATIVE: CASE EVENT DATE: 201008
